FAERS Safety Report 7792208-2 (Version None)
Quarter: 2011Q4

REPORT INFORMATION
  Report Type: 
  Country: None (occurrence: None)
  Receive Date: 20111003
  Receipt Date: 20111003
  Transmission Date: 20120403
  Serious: Yes (Other)
  Sender: FDA-Public Use
  Company Number: None

PATIENT
  Age: 57 Year
  Sex: Male
  Weight: 79.378 kg

DRUGS (1)
  1. FINASTERIDE [Suspect]
     Indication: PROSTATOMEGALY
     Dosage: 5MG
     Route: 048
     Dates: start: 20110807, end: 20110927

REACTIONS (3)
  - LIBIDO DECREASED [None]
  - EJACULATION FAILURE [None]
  - ERECTILE DYSFUNCTION [None]
